FAERS Safety Report 13030099 (Version 4)
Quarter: 2017Q1

REPORT INFORMATION
  Report Type: Spontaneous
  Country: GB (occurrence: GB)
  Receive Date: 20161215
  Receipt Date: 20170323
  Transmission Date: 20170428
  Serious: Yes (Death, Hospitalization)
  Sender: FDA-Public Use
  Company Number: GB-VERTEX PHARMACEUTICALS-2016-007060

PATIENT
  Sex: Female

DRUGS (19)
  1. FOSCAVIR [Concomitant]
     Active Substance: FOSCARNET SODIUM
  2. MONTELUKAST [Concomitant]
     Active Substance: MONTELUKAST SODIUM
  3. CARBOCYSTEINE [Concomitant]
     Active Substance: CARBOCYSTEINE
  4. ESOMEPRAZOLE [Concomitant]
     Active Substance: ESOMEPRAZOLE
  5. ORKAMBI [Suspect]
     Active Substance: IVACAFTOR\LUMACAFTOR
     Indication: CYSTIC FIBROSIS
     Dosage: 2 DF, BID
     Route: 048
     Dates: start: 20160127
  6. QVAR [Concomitant]
     Active Substance: BECLOMETHASONE DIPROPIONATE
  7. SEPTRIN [Concomitant]
     Active Substance: SULFAMETHOXAZOLE\TRIMETHOPRIM
  8. CREON [Concomitant]
     Active Substance: PANCRELIPASE AMYLASE\PANCRELIPASE LIPASE\PANCRELIPASE PROTEASE
  9. ACETYLCYSTEINE. [Concomitant]
     Active Substance: ACETYLCYSTEINE
  10. FEXOFENADINE [Concomitant]
     Active Substance: FEXOFENADINE\FEXOFENADINE HYDROCHLORIDE
  11. SALBUTAMOL [Concomitant]
     Active Substance: ALBUTEROL
  12. RANITIDINE. [Concomitant]
     Active Substance: RANITIDINE
  13. VITAMIN E [Concomitant]
     Active Substance: .ALPHA.-TOCOPHEROL
  14. PHYTOMENADIONE [Concomitant]
     Active Substance: PHYTONADIONE
  15. VITAMIN D3 [Concomitant]
     Active Substance: CHOLECALCIFEROL
  16. AZITHROMYCIN ANHYDROUS. [Concomitant]
     Active Substance: AZITHROMYCIN ANHYDROUS
  17. VITAMIN B+C [Concomitant]
  18. CITALOPRAM [Concomitant]
     Active Substance: CITALOPRAM HYDROBROMIDE
  19. CALOGEN [Concomitant]

REACTIONS (2)
  - Infective pulmonary exacerbation of cystic fibrosis [Fatal]
  - Respiratory failure [Fatal]

NARRATIVE: CASE EVENT DATE: 2016
